FAERS Safety Report 21669850 (Version 1)
Quarter: 2022Q4

REPORT INFORMATION
  Report Type: Other
  Country: None (occurrence: JP)
  Receive Date: 20221201
  Receipt Date: 20221201
  Transmission Date: 20230113
  Serious: Yes (Other)
  Sender: FDA-Public Use
  Company Number: JP-B.Braun Medical Inc.-2135444

PATIENT
  Age: 48 Year
  Sex: Female

DRUGS (1)
  1. EPINEPHRINE\LIDOCAINE [Suspect]
     Active Substance: EPINEPHRINE\LIDOCAINE

REACTIONS (1)
  - Accelerated idioventricular rhythm [Recovered/Resolved]
